FAERS Safety Report 15977013 (Version 6)
Quarter: 2020Q3

REPORT INFORMATION
  Report Type: Report from Study
  Country: US (occurrence: US)
  Receive Date: 20190218
  Receipt Date: 20200820
  Transmission Date: 20201102
  Serious: Yes (Other)
  Sender: FDA-Public Use
  Company Number: PHEH2018US056013

PATIENT
  Age: 76 Year
  Sex: Female

DRUGS (4)
  1. PAROXETIN [Concomitant]
     Active Substance: PAROXETINE HYDROCHLORIDE
     Indication: PRODUCT USED FOR UNKNOWN INDICATION
     Route: 065
  2. GILENYA [Suspect]
     Active Substance: FINGOLIMOD HYDROCHLORIDE
     Indication: MULTIPLE SCLEROSIS
     Dosage: 0.5 MG, QD
     Route: 048
     Dates: start: 20181108, end: 20181108
  3. GILENYA [Suspect]
     Active Substance: FINGOLIMOD HYDROCHLORIDE
     Dosage: 0.5 MG, QD
     Route: 048
     Dates: start: 20181117
  4. GILENYA [Suspect]
     Active Substance: FINGOLIMOD HYDROCHLORIDE
     Dosage: 0.5 MG, QD
     Route: 048

REACTIONS (8)
  - Joint injury [Unknown]
  - Fall [Unknown]
  - Dizziness [Recovered/Resolved]
  - Peripheral swelling [Unknown]
  - Head injury [Unknown]
  - Asthenia [Unknown]
  - Secondary progressive multiple sclerosis [Unknown]
  - Joint swelling [Unknown]

NARRATIVE: CASE EVENT DATE: 20181108
